FAERS Safety Report 9300857 (Version 1)
Quarter: 2013Q2

REPORT INFORMATION
  Report Type: Spontaneous
  Country: FI (occurrence: FI)
  Receive Date: 20130521
  Receipt Date: 20130521
  Transmission Date: 20140414
  Serious: Yes (Hospitalization)
  Sender: FDA-Public Use
  Company Number: FI-JHP PHARMACEUTICALS, LLC-JHP201300302

PATIENT
  Age: 49 Year
  Sex: Female

DRUGS (1)
  1. ADRENALIN [Suspect]
     Indication: ANAPHYLACTIC REACTION
     Dosage: 0.1 MG X 3
     Route: 042

REACTIONS (1)
  - Stress cardiomyopathy [Recovered/Resolved]
